FAERS Safety Report 6188469-6 (Version None)
Quarter: 2009Q2

REPORT INFORMATION
  Report Type: 
  Country: None (occurrence: None)
  Receive Date: 20090513
  Receipt Date: 20090507
  Transmission Date: 20091009
  Serious: Yes (Hospitalization)
  Sender: FDA-Public Use
  Company Number: FR-AVENTIS-200911773FR

PATIENT
  Age: 28 Year
  Sex: Female

DRUGS (3)
  1. ARAVA [Suspect]
     Indication: RHEUMATOID ARTHRITIS
     Route: 048
     Dates: start: 20050101, end: 20080101
  2. ARAVA [Suspect]
     Route: 048
     Dates: start: 20080101
  3. CORTANCYL [Suspect]
     Indication: RHEUMATOID ARTHRITIS
     Route: 048

REACTIONS (5)
  - ANAEMIA [None]
  - ANOREXIA [None]
  - ASTHENIA [None]
  - DYSPNOEA [None]
  - HYPOKALAEMIA [None]
